FAERS Safety Report 6569315-5 (Version None)
Quarter: 2010Q1

REPORT INFORMATION
  Report Type: 
  Country: None (occurrence: None)
  Receive Date: 20100129
  Receipt Date: 20100111
  Transmission Date: 20100710
  Serious: Yes (Death)
  Sender: FDA-Public Use
  Company Number: 004655

PATIENT
  Age: 37 Year
  Sex: Female

DRUGS (4)
  1. ALPRAZOLAM (UCB, INC.) [Suspect]
     Dosage: ORAL
     Route: 048
  2. ACETAMINOPHEN AND HYDROCODONE BITARTRATE [Suspect]
  3. CARISOPRODOL [Suspect]
  4. ZOLPIDEM [Suspect]

REACTIONS (1)
  - COMPLETED SUICIDE [None]
